FAERS Safety Report 18987482 (Version 2)
Quarter: 2021Q4

REPORT INFORMATION
  Report Type: Spontaneous
  Country: US (occurrence: US)
  Receive Date: 20210309
  Receipt Date: 20211124
  Transmission Date: 20220304
  Serious: No
  Sender: FDA-Public Use
  Company Number: US-PFIZER INC-2021153898

PATIENT
  Age: 63 Year
  Sex: Male

DRUGS (2)
  1. XELJANZ XR [Suspect]
     Active Substance: TOFACITINIB CITRATE
     Dosage: UNK
     Dates: start: 20210930, end: 2021
  2. COVID-19 VACCINE [Concomitant]
     Dosage: UNK
     Dates: start: 20210205, end: 20210205

REACTIONS (2)
  - Drug ineffective [Unknown]
  - Skin plaque [Unknown]
